FAERS Safety Report 4393023-2 (Version None)
Quarter: 2004Q3

REPORT INFORMATION
  Report Type: 
  Country: None (occurrence: None)
  Receive Date: 20040708
  Receipt Date: 20040625
  Transmission Date: 20050211
  Serious: Yes (Disabling)
  Sender: FDA-Public Use
  Company Number: JP-GLAXOSMITHKLINE-B0337262A

PATIENT
  Age: 46 Year
  Sex: Female

DRUGS (7)
  1. FLUNASE (JAPAN) [Suspect]
     Dosage: 100MCG PER DAY
     Route: 045
     Dates: start: 20040624
  2. LEVOFLOXACIN [Concomitant]
     Route: 065
     Dates: start: 20040623
  3. MUCODYNE [Concomitant]
     Route: 048
     Dates: start: 20040603
  4. MARZULENE [Concomitant]
     Route: 048
     Dates: start: 20040623
  5. FLOMOX [Concomitant]
     Route: 048
     Dates: start: 20040603
  6. MUCOSTA [Concomitant]
     Route: 048
     Dates: start: 20040603
  7. CLARITIN [Concomitant]
     Route: 048
     Dates: start: 20040603

REACTIONS (1)
  - DEPRESSED LEVEL OF CONSCIOUSNESS [None]
